FAERS Safety Report 7299671-4 (Version None)
Quarter: 2011Q1

REPORT INFORMATION
  Report Type: 
  Country: None (occurrence: None)
  Receive Date: 20110208
  Receipt Date: 20110127
  Transmission Date: 20110831
  Serious: Yes (Hospitalization)
  Sender: FDA-Public Use
  Company Number: TCI2010A01156

PATIENT
  Age: 52 Year
  Sex: Male

DRUGS (10)
  1. DIOVAN [Concomitant]
  2. LIPITOR [Concomitant]
  3. METFORMIN HYDROCHLORIDE [Concomitant]
  4. AMARYL [Concomitant]
  5. ASPIRIN [Concomitant]
  6. ACTOS [Suspect]
     Indication: TYPE 2 DIABETES MELLITUS
     Dosage: 15 MG (15 MG, 1 IN 1 D) PER ORAL; 7.5 MG (7.5 MG, 1 IN 1 D) PER ORAL;  PER ORAL
     Route: 048
     Dates: start: 20080107, end: 20081203
  7. ACTOS [Suspect]
     Indication: TYPE 2 DIABETES MELLITUS
     Dosage: 15 MG (15 MG, 1 IN 1 D) PER ORAL; 7.5 MG (7.5 MG, 1 IN 1 D) PER ORAL;  PER ORAL
     Route: 048
     Dates: start: 20091201, end: 20091201
  8. ACTOS [Suspect]
     Indication: TYPE 2 DIABETES MELLITUS
     Dosage: 15 MG (15 MG, 1 IN 1 D) PER ORAL; 7.5 MG (7.5 MG, 1 IN 1 D) PER ORAL;  PER ORAL
     Route: 048
     Dates: start: 20070705, end: 20080106
  9. ACTOS [Suspect]
     Indication: TYPE 2 DIABETES MELLITUS
     Dosage: 15 MG (15 MG, 1 IN 1 D) PER ORAL; 7.5 MG (7.5 MG, 1 IN 1 D) PER ORAL;  PER ORAL
     Route: 048
     Dates: start: 20070607, end: 20070704
  10. ACTOS [Suspect]
     Indication: TYPE 2 DIABETES MELLITUS
     Dosage: 15 MG (15 MG, 1 IN 1 D) PER ORAL; 7.5 MG (7.5 MG, 1 IN 1 D) PER ORAL;  PER ORAL
     Route: 048
     Dates: start: 20081204, end: 20090903

REACTIONS (5)
  - LUMBAR HERNIA [None]
  - ARTHRALGIA [None]
  - WEIGHT INCREASED [None]
  - MALAISE [None]
  - OEDEMA PERIPHERAL [None]
